FAERS Safety Report 4428281-9 (Version None)
Quarter: 2004Q3

REPORT INFORMATION
  Report Type: 
  Country: None (occurrence: None)
  Receive Date: 20040813
  Receipt Date: 20040723
  Transmission Date: 20050211
  Serious: Yes (Hospitalization)
  Sender: FDA-Public Use
  Company Number: MEDI-0002152

PATIENT
  Age: 18 Month
  Sex: Male

DRUGS (5)
  1. SYNAGIS [Suspect]
     Indication: ANTIVIRAL PROPHYLAXIS
     Dosage: 100 MG, 1 IN 30 D, INTRAMUSCULAR
     Route: 030
     Dates: start: 20031027, end: 20031027
  2. L-CARBOCISTEINE (CARBOCISTEINE LYSINE) [Concomitant]
  3. TULOBUTEROL (TULOBUTEROL) [Concomitant]
  4. CEFCAPENE HYDROCHLORIDE (CEFCAPENE PIVOXIL HYDROCHLORIDE) [Concomitant]
  5. CEFMETAZOLE SODIUM (CEFMETAZOLE SODIUM) [Concomitant]

REACTIONS (1)
  - RESPIRATORY ARREST [None]
